FAERS Safety Report 9682829 (Version 2)
Quarter: 2014Q1

REPORT INFORMATION
  Report Type: Spontaneous
  Country: IT (occurrence: IT)
  Receive Date: 20131112
  Receipt Date: 20140113
  Transmission Date: 20141002
  Serious: Yes (Hospitalization)
  Sender: FDA-Public Use
  Company Number: PHHY2013IT128128

PATIENT
  Sex: Female

DRUGS (4)
  1. STALEVO [Suspect]
     Indication: PARKINSON^S DISEASE
     Dosage: UNK  (LEVO 200MG, CARB 50MG, ENTE 200MG)
     Dates: start: 20120912, end: 20130911
  2. AZILECT [Concomitant]
     Dosage: 1 MG, UNK
  3. NIMOTOP [Concomitant]
     Dosage: 30 MG, UNK
  4. CARDIRENE [Concomitant]
     Dosage: 75 MG, UNK

REACTIONS (1)
  - Hepatitis cholestatic [Not Recovered/Not Resolved]
